FAERS Safety Report 8369417-7 (Version None)
Quarter: 2012Q2

REPORT INFORMATION
  Report Type: 
  Country: None (occurrence: None)
  Receive Date: 20120518
  Receipt Date: 20120508
  Transmission Date: 20120825
  Serious: Yes (Hospitalization)
  Sender: FDA-Public Use
  Company Number: JP-SANOFI-AVENTIS-2012SA034070

PATIENT

DRUGS (4)
  1. LANTUS [Suspect]
     Route: 058
     Dates: start: 20120508, end: 20120508
  2. LANTUS [Suspect]
     Indication: DIABETES MELLITUS
     Route: 065
  3. SOLOSTAR [Suspect]
     Indication: DEVICE THERAPY
  4. SOLOSTAR [Suspect]

REACTIONS (3)
  - INTENTIONAL OVERDOSE [None]
  - SUICIDE ATTEMPT [None]
  - HYPOGLYCAEMIA [None]
